FAERS Safety Report 24969806 (Version 1)
Quarter: 2025Q1

REPORT INFORMATION
  Report Type: Spontaneous
  Country: CA (occurrence: CA)
  Receive Date: 20250214
  Receipt Date: 20250214
  Transmission Date: 20250409
  Serious: Yes (Hospitalization, Other)
  Sender: HIKMA
  Company Number: CA-HIKMA PHARMACEUTICALS-CA-H14001-25-01166

PATIENT
  Age: 72 Year
  Sex: Male
  Weight: 60 kg

DRUGS (43)
  1. AZACITIDINE [Suspect]
     Active Substance: AZACITIDINE
     Indication: Myeloproliferative neoplasm
     Dosage: 132 MILLIGRAM, QD
     Route: 058
  2. VENETOCLAX [Suspect]
     Active Substance: VENETOCLAX
     Dosage: 200 MILLIGRAM, QD
     Route: 048
  3. VENETOCLAX [Suspect]
     Active Substance: VENETOCLAX
     Indication: Myeloproliferative neoplasm
     Dosage: 400 MILLIGRAM, QD
     Route: 048
  4. ALLOPURINOL [Concomitant]
     Active Substance: ALLOPURINOL
     Indication: Gout
     Dosage: 100 MILLIGRAM, QD
     Route: 048
  5. ALLOPURINOL [Concomitant]
     Active Substance: ALLOPURINOL
     Dosage: 200 MILLIGRAM, QD
     Route: 048
  6. AMOXICILLIN\CLAVULANATE POTASSIUM [Concomitant]
     Active Substance: AMOXICILLIN\CLAVULANATE POTASSIUM
     Indication: Pneumonia
     Dosage: 875 MILLIGRAM, Q12H
     Route: 048
  7. AMOXICILLIN\CLAVULANATE POTASSIUM [Concomitant]
     Active Substance: AMOXICILLIN\CLAVULANATE POTASSIUM
     Dosage: UNKNOWN, QD
     Route: 048
  8. ATOVAQUONE [Concomitant]
     Active Substance: ATOVAQUONE
     Dosage: 1500 MILLIGRAM, QD
     Route: 048
  9. ATOVAQUONE [Concomitant]
     Active Substance: ATOVAQUONE
     Indication: Pneumonia
     Dosage: 750 MILLIGRAM, Q12H
     Route: 048
  10. BUPROPION HYDROCHLORIDE [Concomitant]
     Active Substance: BUPROPION HYDROCHLORIDE
     Indication: Depression
     Dosage: 300 MILLIGRAM, QD
     Route: 048
  11. CARBIDOPA\LEVODOPA [Concomitant]
     Active Substance: CARBIDOPA\LEVODOPA
     Indication: Parkinson^s disease
     Dosage: 100 MILLIGRAM, Q8H
     Route: 048
  12. CIPROFLOXACIN [Concomitant]
     Active Substance: CIPROFLOXACIN
     Indication: Pneumonia
     Dosage: 750 MILLIGRAM, Q12H
     Route: 048
  13. CODEINE [Concomitant]
     Active Substance: CODEINE
     Indication: Cough
     Dosage: 15 MILLIGRAM, Q6H
     Route: 048
  14. COLCHICINE [Concomitant]
     Active Substance: COLCHICINE
     Indication: Gout
     Dosage: 0.6 MILLIGRAM, QD
     Route: 048
  15. ENOXAPARIN [Concomitant]
     Active Substance: ENOXAPARIN
     Indication: Prophylaxis
     Dosage: 40 MILLIGRAM, QD
     Route: 058
  16. FUROSEMIDE [Concomitant]
     Active Substance: FUROSEMIDE
     Indication: Hypervolaemia
     Dosage: 20 MILLIGRAM, QD
     Route: 042
  17. HYDROXYUREA [Concomitant]
     Active Substance: HYDROXYUREA
     Indication: Myeloproliferative neoplasm
     Dosage: 1 GRAM, QD
     Route: 048
  18. LEVOFLOXACIN [Concomitant]
     Active Substance: LEVOFLOXACIN
     Indication: Pneumonia
     Dosage: 500 MILLIGRAM, QD
     Route: 048
  19. MIRABEGRON [Concomitant]
     Active Substance: MIRABEGRON
     Indication: Hypertonic bladder
     Dosage: 50 MILLIGRAM, QD
     Route: 048
  20. SODIUM CHLORIDE [Concomitant]
     Active Substance: SODIUM CHLORIDE
     Indication: Chronic kidney disease
     Route: 040
  21. SODIUM CHLORIDE [Concomitant]
     Active Substance: SODIUM CHLORIDE
     Indication: Tumour lysis syndrome
     Route: 042
  22. ONDANSETRON [Concomitant]
     Active Substance: ONDANSETRON
     Indication: Prophylaxis of nausea and vomiting
     Dosage: 16 MILLIGRAM, QD
     Route: 048
  23. PANTOPRAZOLE [Concomitant]
     Active Substance: PANTOPRAZOLE
     Indication: Prophylaxis
     Dosage: 40 MILLIGRAM, QD
     Route: 048
  24. PIPERACILLIN SODIUM\TAZOBACTAM SODIUM [Concomitant]
     Active Substance: PIPERACILLIN SODIUM\TAZOBACTAM SODIUM
     Indication: Pyrexia
     Route: 042
  25. PIPERACILLIN SODIUM\TAZOBACTAM SODIUM [Concomitant]
     Active Substance: PIPERACILLIN SODIUM\TAZOBACTAM SODIUM
     Indication: Pneumonia
     Dosage: 5 GRAM, Q6H
     Route: 042
  26. AZITHROMYCIN ANHYDROUS [Concomitant]
     Active Substance: AZITHROMYCIN ANHYDROUS
     Indication: Pneumonia
     Dosage: 250 MILLIGRAM, 1 EVERY 1 DAY
     Route: 042
  27. PREDNISONE [Concomitant]
     Active Substance: PREDNISONE
     Indication: Pneumonia
     Dosage: 40 MILLIGRAM, QD
     Route: 048
  28. PREDNISONE [Concomitant]
     Active Substance: PREDNISONE
     Indication: Gout
     Dosage: 50 MILLIGRAM, QD
     Route: 048
  29. RHINOCORT AQUA [Concomitant]
     Active Substance: BUDESONIDE
     Indication: Cough
     Dosage: 64 MICROGRAM, QD, INTRANASAL
     Route: 045
  30. RUXOLITINIB [Concomitant]
     Active Substance: RUXOLITINIB
     Dosage: 10 MILLIGRAM, Q12H
     Route: 048
  31. RUXOLITINIB [Concomitant]
     Active Substance: RUXOLITINIB
     Dosage: 20 MILLIGRAM, Q12H
     Route: 048
  32. RUXOLITINIB [Concomitant]
     Active Substance: RUXOLITINIB
     Indication: Splenomegaly
     Route: 048
  33. SEPTRA [Concomitant]
     Active Substance: SULFAMETHOXAZOLE\TRIMETHOPRIM
     Indication: Pneumonia
     Dosage: 800 MILLIGRAM, Q8H
     Route: 048
  34. SYMBICORT [Concomitant]
     Active Substance: BUDESONIDE\FORMOTEROL FUMARATE DIHYDRATE
     Indication: Cough
     Route: 055
  35. SYMBICORT [Concomitant]
     Active Substance: BUDESONIDE\FORMOTEROL FUMARATE DIHYDRATE
     Route: 055
  36. TADALAFIL [Concomitant]
     Active Substance: TADALAFIL
     Indication: Hypertonic bladder
     Dosage: 5 MILLIGRAM, QD
     Route: 048
  37. TAMSULOSIN [Concomitant]
     Active Substance: TAMSULOSIN
     Indication: Hypertonic bladder
     Dosage: 0.4 MILLIGRAM, QD
     Route: 048
  38. VALACYCLOVIR [Concomitant]
     Active Substance: VALACYCLOVIR HYDROCHLORIDE
     Indication: Prophylaxis
     Dosage: 500 MILLIGRAM, Q12H
     Route: 048
  39. VITAMIN D NOS [Concomitant]
     Active Substance: CHOLECALCIFEROL\ERGOCALCIFEROL
     Indication: Osteoporosis
     Dosage: 2000 INTERNATIONAL UNIT, QD
     Route: 048
  40. VORICONAZOLE [Concomitant]
     Active Substance: VORICONAZOLE
     Dosage: 200 MILLIGRAM, Q12H
     Route: 048
  41. VORICONAZOLE [Concomitant]
     Active Substance: VORICONAZOLE
     Indication: Pneumonia
     Dosage: 250 MILLIGRAM, Q12H
     Route: 048
  42. VORTIOXETINE [Concomitant]
     Active Substance: VORTIOXETINE
     Indication: Depression
     Dosage: 10 MILLIGRAM, QD
     Route: 048
  43. VORTIOXETINE HYDROBROMIDE [Concomitant]
     Active Substance: VORTIOXETINE HYDROBROMIDE
     Indication: Depression
     Dosage: 10 MILLIGRAM, QD
     Route: 048

REACTIONS (10)
  - Confusional state [Not Recovered/Not Resolved]
  - Cough [Not Recovered/Not Resolved]
  - Dizziness [Not Recovered/Not Resolved]
  - Dyspnoea [Not Recovered/Not Resolved]
  - Fall [Not Recovered/Not Resolved]
  - Fatigue [Not Recovered/Not Resolved]
  - Febrile neutropenia [Not Recovered/Not Resolved]
  - Malaise [Not Recovered/Not Resolved]
  - Pneumonia [Not Recovered/Not Resolved]
  - Respiratory failure [Not Recovered/Not Resolved]
